FAERS Safety Report 7118002-3 (Version None)
Quarter: 2010Q4

REPORT INFORMATION
  Report Type: 
  Country: None (occurrence: None)
  Receive Date: 20101108
  Receipt Date: 20101029
  Transmission Date: 20110411
  Serious: Yes (Hospitalization)
  Sender: FDA-Public Use
  Company Number: 2010SP057765

PATIENT
  Age: 41 Year
  Sex: Female
  Weight: 48 kg

DRUGS (11)
  1. GANIREST (GANIRELIX /01453701/) [Suspect]
     Indication: PREVENTION OF PREMATURE OVULATION
     Dosage: 0.25 MG; ONCE; SC
     Route: 058
     Dates: start: 20100621, end: 20100621
  2. GANIREST (GANIRELIX /01453701/) [Suspect]
     Indication: PREVENTION OF PREMATURE OVULATION
     Dosage: 0.25 MG; ONCE; SC
     Route: 058
     Dates: start: 20100623, end: 20100623
  3. FOLLISTIM [Suspect]
     Indication: IN VITRO FERTILISATION
     Dosage: 150 IU; ; SC, 200 IU; ; SC
     Route: 058
     Dates: start: 20100617, end: 20100622
  4. FOLLISTIM [Suspect]
     Indication: IN VITRO FERTILISATION
     Dosage: 150 IU; ; SC, 200 IU; ; SC
     Route: 058
     Dates: start: 20100623, end: 20100623
  5. PREGNYL [Suspect]
     Indication: OVULATION INDUCTION
     Dosage: 10000 IU;
     Dates: start: 20100624, end: 20100624
  6. NORGESTREL AND ETHINYL ESTRADIOL [Concomitant]
  7. PROGE DEPOT [Concomitant]
  8. OVAHORMON DEPOT [Concomitant]
  9. PROGESTERONE [Concomitant]
  10. ESTRANA [Concomitant]
  11. PROGESTERONE [Concomitant]

REACTIONS (3)
  - ABORTION MISSED [None]
  - OVARIAN HYPERSTIMULATION SYNDROME [None]
  - PREGNANCY [None]
